FAERS Safety Report 12558220 (Version 2)
Quarter: 2016Q3

REPORT INFORMATION
  Report Type: Spontaneous
  Country: US (occurrence: US)
  Receive Date: 20160714
  Receipt Date: 20160825
  Transmission Date: 20161109
  Serious: No
  Sender: FDA-Public Use
  Company Number: US-ACTELION-A-US2016-138720

PATIENT
  Age: 47 Year
  Sex: Male

DRUGS (13)
  1. UPTRAVI [Suspect]
     Active Substance: SELEXIPAG
     Dosage: UNK
     Route: 048
     Dates: start: 20160518
  2. POTASSIUM [Concomitant]
     Active Substance: POTASSIUM
  3. FERROUS SULFATE. [Concomitant]
     Active Substance: FERROUS SULFATE
  4. UPTRAVI [Suspect]
     Active Substance: SELEXIPAG
     Dosage: 1000 MCG, BID
     Route: 048
     Dates: start: 20160626, end: 20160815
  5. ADCIRCA [Concomitant]
     Active Substance: TADALAFIL
  6. ALDACTONE [Concomitant]
     Active Substance: SPIRONOLACTONE
  7. TORSEMIDE. [Concomitant]
     Active Substance: TORSEMIDE
  8. OPSUMIT [Suspect]
     Active Substance: MACITENTAN
     Indication: PULMONARY ARTERIAL HYPERTENSION
     Dosage: 10 MG, QD
     Route: 048
     Dates: start: 20150903
  9. IRON [Concomitant]
     Active Substance: IRON
  10. CALCIUM [Concomitant]
     Active Substance: CALCIUM
  11. LEVO [Concomitant]
     Active Substance: LEVOBUPIVACAINE
  12. LEVOTHYROXINE. [Concomitant]
     Active Substance: LEVOTHYROXINE
  13. UPTRAVI [Suspect]
     Active Substance: SELEXIPAG
     Indication: PULMONARY ARTERIAL HYPERTENSION
     Dosage: 1200 MCG, BID
     Route: 048
     Dates: start: 20160624, end: 20160626

REACTIONS (5)
  - Testicular swelling [Not Recovered/Not Resolved]
  - Agitation [Recovered/Resolved]
  - Gait disturbance [Unknown]
  - Lethargy [Unknown]
  - Blood urine present [Recovered/Resolved]

NARRATIVE: CASE EVENT DATE: 20160624
